FAERS Safety Report 9106602 (Version 2)
Quarter: 2013Q4

REPORT INFORMATION
  Report Type: Spontaneous
  Country: GB (occurrence: GB)
  Receive Date: 20130221
  Receipt Date: 20131008
  Transmission Date: 20140711
  Serious: Yes (Life-Threatening, Hospitalization, Disabling, Other)
  Sender: FDA-Public Use
  Company Number: GB-ELI_LILLY_AND_COMPANY-GB201302002959

PATIENT
  Age: 18 Year
  Sex: Female

DRUGS (4)
  1. FLUOXETINE [Suspect]
     Indication: DEPRESSION
     Dosage: 20 MG, UNKNOWN
     Route: 048
     Dates: start: 20111005, end: 20121220
  2. AMITRIPTYLINE [Suspect]
     Indication: HEADACHE
     Dosage: 1 DF, UNKNOWN
     Route: 048
     Dates: start: 20120112, end: 20120215
  3. NORTRIPTYLINE [Suspect]
     Indication: HEADACHE
     Dosage: 1 DF, UNKNOWN
     Route: 048
     Dates: start: 20120215, end: 20121122
  4. LAXIDO [Concomitant]
     Indication: CONSTIPATION
     Dosage: 1 DF, PRN
     Route: 048
     Dates: start: 20120509, end: 20130123

REACTIONS (4)
  - Syncope [Recovered/Resolved]
  - Muscular weakness [Recovered/Resolved]
  - Gastrooesophageal reflux disease [Recovered/Resolved]
  - Dizziness [Recovered/Resolved]
